FAERS Safety Report 7780738-9 (Version None)
Quarter: 2011Q3

REPORT INFORMATION
  Report Type: 
  Country: None (occurrence: None)
  Receive Date: 20110927
  Receipt Date: 20110627
  Transmission Date: 20111222
  Serious: No
  Sender: FDA-Public Use
  Company Number: US-BRISTOL-MYERS SQUIBB COMPANY-15857014

PATIENT
  Age: 61 Year
  Sex: Male

DRUGS (6)
  1. MINOCYCLINE HCL [Concomitant]
  2. AVAPRO [Suspect]
     Dates: end: 20110621
  3. CLINDAMYCIN [Concomitant]
  4. ERBITUX [Concomitant]
  5. PROTONIX [Concomitant]
  6. SODIUM HYALURONATE [Concomitant]
     Dosage: X-CLAIR CREAM

REACTIONS (1)
  - HYPOTENSION [None]
